FAERS Safety Report 5754131-4 (Version None)
Quarter: 2008Q2

REPORT INFORMATION
  Report Type: 
  Country: None (occurrence: None)
  Receive Date: 20080530
  Receipt Date: 20080526
  Transmission Date: 20081010
  Serious: Yes (Death, Other)
  Sender: FDA-Public Use
  Company Number: JP-WYE-H04275208

PATIENT
  Sex: Male
  Weight: 65 kg

DRUGS (9)
  1. AMIODARONE HCL [Suspect]
     Indication: VENTRICULAR TACHYCARDIA
     Route: 042
     Dates: start: 20080108, end: 20080108
  2. AMIODARONE HCL [Suspect]
     Route: 042
     Dates: start: 20080108, end: 20080108
  3. AMIODARONE HCL [Suspect]
     Route: 042
     Dates: start: 20080108, end: 20080108
  4. INOVAN [Concomitant]
     Dosage: DOSE UNKNOWN
     Route: 042
     Dates: start: 20071206
  5. HEPARIN SODIUM [Concomitant]
     Dosage: DOSE UNKNOWN
     Route: 042
     Dates: start: 20071206
  6. NORADRENALINE [Concomitant]
     Dosage: DOSE UNKNOWN
     Route: 042
     Dates: start: 20080108
  7. HANP [Concomitant]
     Dosage: DOSE UNKNOWN
     Route: 042
     Dates: start: 20071210
  8. SHINBIT [Concomitant]
     Dosage: DOSE UNKNOWN
     Route: 042
     Dates: start: 20071230, end: 20080107
  9. DOBUTREX [Concomitant]
     Dosage: DOSE UNKNOWN
     Route: 042
     Dates: start: 20071206

REACTIONS (5)
  - ALANINE AMINOTRANSFERASE INCREASED [None]
  - ASPARTATE AMINOTRANSFERASE INCREASED [None]
  - BLOOD BILIRUBIN INCREASED [None]
  - BLOOD PRESSURE DECREASED [None]
  - C-REACTIVE PROTEIN INCREASED [None]
